FAERS Safety Report 9667111 (Version 1)
Quarter: 2013Q4

REPORT INFORMATION
  Report Type: Spontaneous
  Country: US (occurrence: US)
  Receive Date: 20131104
  Receipt Date: 20131104
  Transmission Date: 20140711
  Serious: No
  Sender: FDA-Public Use
  Company Number: US-BIOGENIDEC-2013BI089855

PATIENT
  Age: 44 Year
  Sex: Male
  Weight: 71 kg

DRUGS (9)
  1. TECFIDERA [Suspect]
     Indication: PRODUCT USED FOR UNKNOWN INDICATION
     Route: 048
  2. TECFIDERA [Suspect]
     Indication: PRODUCT USED FOR UNKNOWN INDICATION
     Route: 048
  3. CLONAZEPAM [Concomitant]
  4. GABAPENTIN [Concomitant]
  5. NIACIN [Concomitant]
  6. ADVIL [Concomitant]
  7. MAGNESIUM [Concomitant]
  8. FISH OIL [Concomitant]
  9. B COMPLEX [Concomitant]

REACTIONS (3)
  - Fatigue [Unknown]
  - Flushing [Unknown]
  - Diarrhoea [Recovered/Resolved]
